FAERS Safety Report 5338783-9 (Version None)
Quarter: 2007Q2

REPORT INFORMATION
  Report Type: 
  Country: None (occurrence: None)
  Receive Date: 20070530
  Receipt Date: 20070516
  Transmission Date: 20071010
  Serious: Yes (Other)
  Sender: FDA-Public Use
  Company Number: US-AMGEN-KDL225226

PATIENT
  Sex: Female

DRUGS (4)
  1. ENBREL [Suspect]
     Indication: PSORIASIS
     Route: 058
     Dates: start: 20060801, end: 20070401
  2. IMIPRAMINE [Concomitant]
  3. PRAVACHOL [Concomitant]
  4. PREVACID [Concomitant]

REACTIONS (4)
  - DERMATITIS [None]
  - NODULE ON EXTREMITY [None]
  - PAIN IN EXTREMITY [None]
  - PANNICULITIS [None]
